FAERS Safety Report 24920431 (Version 1)
Quarter: 2025Q1

REPORT INFORMATION
  Report Type: Spontaneous
  Country: IT (occurrence: IT)
  Receive Date: 20250204
  Receipt Date: 20250204
  Transmission Date: 20250408
  Serious: Yes (Hospitalization, Other)
  Sender: AMGEN
  Company Number: None

PATIENT
  Age: 84 Year
  Sex: Female

DRUGS (1)
  1. EVENITY [Suspect]
     Active Substance: ROMOSOZUMAB-AQQG
     Indication: Osteoporosis
     Dosage: ROMOSOZUMAB 210 MG SUBCUTANEOUSLY (2 INJECTIONS OF 105 MG EACH) ONCE A MONTH.
     Route: 058
     Dates: start: 20240524, end: 20241127

REACTIONS (1)
  - Transient ischaemic attack [Recovered/Resolved]
